FAERS Safety Report 4269842-X (Version None)
Quarter: 2004Q1

REPORT INFORMATION
  Report Type: 
  Country: None (occurrence: None)
  Receive Date: 20040112
  Receipt Date: 20040105
  Transmission Date: 20041129
  Serious: Yes (Hospitalization)
  Sender: FDA-Public Use
  Company Number: 04P-163-0246227-00

PATIENT
  Age: 90 Year
  Sex: Female
  Weight: 68.0396 kg

DRUGS (1)
  1. HUMIRA [Suspect]
     Indication: RHEUMATOID ARTHRITIS
     Dosage: 40 MG, 1 IN 2 WK, SUBCUTANEOUS
     Route: 058
     Dates: start: 20031101

REACTIONS (2)
  - BLOOD PRESSURE DECREASED [None]
  - GALLBLADDER PERFORATION [None]
